FAERS Safety Report 22124699 (Version 2)
Quarter: 2023Q2

REPORT INFORMATION
  Report Type: Spontaneous
  Country: IL (occurrence: IL)
  Receive Date: 20230322
  Receipt Date: 20230405
  Transmission Date: 20230721
  Serious: Yes (Hospitalization, Other)
  Sender: FDA-Public Use
  Company Number: IL-AMERICAN REGENT INC-2023000679

PATIENT
  Sex: Female

DRUGS (1)
  1. FERINJECT [Suspect]
     Active Substance: FERRIC CARBOXYMALTOSE
     Indication: Product used for unknown indication
     Dosage: 2 AMPOULES (UNSPECIFIED DOSE)
     Route: 042
     Dates: start: 20230312, end: 20230312

REACTIONS (5)
  - Malaise [Recovered/Resolved]
  - Maternal exposure during pregnancy [Unknown]
  - Headache [Recovered/Resolved]
  - Chills [Recovered/Resolved]
  - Suspected product quality issue [Unknown]

NARRATIVE: CASE EVENT DATE: 20230312
